FAERS Safety Report 10685056 (Version 1)
Quarter: 2014Q4

REPORT INFORMATION
  Report Type: Spontaneous
  Country: US (occurrence: None)
  Receive Date: 20141209
  Receipt Date: 20141209
  Transmission Date: 20150529
  Serious: Yes (Other)
  Sender: FDA-Public Use
  Company Number: 402222N

PATIENT
  Age: 80 Year
  Sex: Male

DRUGS (2)
  1. LANTUS [Concomitant]
     Active Substance: INSULIN GLARGINE
  2. NOVOLOG [Suspect]
     Active Substance: INSULIN ASPART
     Indication: TYPE 1 DIABETES MELLITUS
     Dosage: 5 UNITS EVERY 2 HOURS WHILE AWAKE,SUBCUTANEOUS
     Route: 058
     Dates: start: 2004

REACTIONS (3)
  - Incorrect product storage [None]
  - Hyperglycaemic unconsciousness [None]
  - Blood glucose fluctuation [None]

NARRATIVE: CASE EVENT DATE: 201203
